FAERS Safety Report 4291298-1 (Version None)
Quarter: 2004Q1

REPORT INFORMATION
  Report Type: 
  Country: None (occurrence: None)
  Receive Date: 20040211
  Receipt Date: 20031202
  Transmission Date: 20041129
  Serious: No
  Sender: FDA-Public Use
  Company Number: US-GLAXOSMITHKLINE-A0442057A

PATIENT
  Sex: Male

DRUGS (2)
  1. PAXIL [Suspect]
     Indication: PANIC ATTACK
     Dosage: 30MG PER DAY
     Route: 048
  2. PAXIL [Suspect]
     Dosage: 25MG PER DAY
     Route: 048

REACTIONS (4)
  - ABNORMAL DREAMS [None]
  - DIZZINESS [None]
  - INSOMNIA [None]
  - PARAESTHESIA [None]
